FAERS Safety Report 15537102 (Version 1)
Quarter: 2018Q4

REPORT INFORMATION
  Report Type: Spontaneous
  Country: US (occurrence: US)
  Receive Date: 20181022
  Receipt Date: 20181022
  Transmission Date: 20190205
  Serious: Yes (Hospitalization)
  Sender: FDA-Public Use
  Company Number: US-LEXICON PHARMACEUTICALS, INC-18-1606-01301

PATIENT
  Sex: Female

DRUGS (24)
  1. CLARITIN [Concomitant]
     Active Substance: LORATADINE
  2. FOLIC ACID. [Concomitant]
     Active Substance: FOLIC ACID
  3. BENAZEPRIL HCL [Concomitant]
     Active Substance: BENAZEPRIL HYDROCHLORIDE
  4. NYSTATIN. [Concomitant]
     Active Substance: NYSTATIN
  5. SPIRONOLACTONE. [Concomitant]
     Active Substance: SPIRONOLACTONE
  6. GABAPENTIN. [Concomitant]
     Active Substance: GABAPENTIN
  7. LORAZEPAM. [Concomitant]
     Active Substance: LORAZEPAM
  8. HYDROCO / APAP [Concomitant]
     Dosage: 10-325 MG
  9. LASIX [Concomitant]
     Active Substance: FUROSEMIDE
     Route: 048
  10. CHOLECALCIFEROL [Concomitant]
     Active Substance: CHOLECALCIFEROL
  11. COLACE [Concomitant]
     Active Substance: DOCUSATE SODIUM
  12. COMPAZINE [Concomitant]
     Active Substance: PROCHLORPERAZINE MALEATE
  13. POLYETHYLENE GLYCOL [Concomitant]
     Active Substance: POLYETHYLENE GLYCOLS
  14. TELOTRISTAT ETHYL [Suspect]
     Active Substance: TELOTRISTAT ETHYL
     Indication: CARCINOID TUMOUR
  15. MUPIROCIN. [Concomitant]
     Active Substance: MUPIROCIN
  16. SANDOSTATIN [Concomitant]
     Active Substance: OCTREOTIDE ACETATE
     Dosage: 100 MCG/ML
  17. SENNA [Concomitant]
     Active Substance: SENNA LEAF\SENNOSIDES\SENNOSIDES A AND B
     Dosage: 176 MG / 5 ML
  18. PROVENTIL [Concomitant]
     Active Substance: ALBUTEROL
  19. ENOXAPARIN [Concomitant]
     Active Substance: ENOXAPARIN
     Dosage: 100 MG/ML
  20. LASIX [Concomitant]
     Active Substance: FUROSEMIDE
     Route: 048
  21. TELOTRISTAT ETHYL [Suspect]
     Active Substance: TELOTRISTAT ETHYL
     Indication: CARCINOID SYNDROME
     Route: 048
     Dates: start: 20171128
  22. MORPHINE SULFATE. [Concomitant]
     Active Substance: MORPHINE SULFATE
  23. ALBUTEROL. [Concomitant]
     Active Substance: ALBUTEROL
  24. RANITIDINE. [Concomitant]
     Active Substance: RANITIDINE

REACTIONS (1)
  - Hospitalisation [Unknown]

NARRATIVE: CASE EVENT DATE: 2018
